FAERS Safety Report 23305645 (Version 1)
Quarter: 2023Q4

REPORT INFORMATION
  Report Type: Spontaneous
  Country: CN (occurrence: CN)
  Receive Date: 20231218
  Receipt Date: 20231218
  Transmission Date: 20240109
  Serious: Yes (Hospitalization, Other)
  Sender: FDA-Public Use
  Company Number: None

PATIENT
  Age: 29 Year
  Sex: Female
  Weight: 51 kg

DRUGS (4)
  1. CYCLOPHOSPHAMIDE [Suspect]
     Active Substance: CYCLOPHOSPHAMIDE
     Indication: Acute lymphocytic leukaemia
     Dosage: 1.1G, ONE TIME IN ONE DAY, DILUTED WITH SODIUM CHLORIDE (500 ML)
     Route: 041
     Dates: start: 20231104, end: 20231106
  2. SODIUM CHLORIDE [Suspect]
     Active Substance: SODIUM CHLORIDE
     Indication: Medication dilution
     Dosage: (0.9%, INJECTION), 500 ML, INJECTION, ONE TIME IN ONE DAY, USED TO DILUTE CYCLOPHOSPHAMIDE (1.1G )
     Route: 041
     Dates: start: 20231104, end: 20231106
  3. SODIUM CHLORIDE [Suspect]
     Active Substance: SODIUM CHLORIDE
     Dosage: 500 ML, INJECTION, ONE TIME IN ONE DAY, USED TO DILUTE DAUNORUBICIN HYDROCHLORIDE (40 MG )
     Route: 041
     Dates: start: 20231104, end: 20231106
  4. DAUNORUBICIN HYDROCHLORIDE [Suspect]
     Active Substance: DAUNORUBICIN HYDROCHLORIDE
     Indication: Acute lymphocytic leukaemia
     Dosage: 40 MG, ONE TIME IN ONE DAY, DILUTED WITH SODIUM CHLORIDE (500 ML)
     Route: 041
     Dates: start: 20231104, end: 20231106

REACTIONS (2)
  - White blood cell count decreased [Unknown]
  - Neutrophil count decreased [Unknown]

NARRATIVE: CASE EVENT DATE: 20231111
